FAERS Safety Report 24094290 (Version 1)
Quarter: 2024Q3

REPORT INFORMATION
  Report Type: Report from Study
  Country: BG (occurrence: BG)
  Receive Date: 20240716
  Receipt Date: 20240716
  Transmission Date: 20241016
  Serious: Yes (Hospitalization, Other)
  Sender: ABBVIE
  Company Number: BG-ABBVIE-5790898

PATIENT
  Age: 55 Year
  Sex: Female

DRUGS (1)
  1. HUMIRA [Suspect]
     Active Substance: ADALIMUMAB
     Indication: Rheumatoid arthritis
     Dosage: LAST ADMIN DATE 2024
     Route: 058
     Dates: start: 202402

REACTIONS (1)
  - Breast abscess [Recovered/Resolved]

NARRATIVE: CASE EVENT DATE: 20240101
